FAERS Safety Report 5310072-8 (Version None)
Quarter: 2007Q2

REPORT INFORMATION
  Report Type: 
  Country: None (occurrence: None)
  Receive Date: 20070427
  Receipt Date: 20070424
  Transmission Date: 20071010
  Serious: Yes (Other)
  Sender: FDA-Public Use
  Company Number: SE-GLAXOSMITHKLINE-B0468361A

PATIENT

DRUGS (1)
  1. LAMICTAL [Suspect]
     Dosage: 200MG PER DAY

REACTIONS (2)
  - ARTHRITIS [None]
  - SARCOIDOSIS [None]
